FAERS Safety Report 10524601 (Version 1)
Quarter: 2014Q4

REPORT INFORMATION
  Report Type: Spontaneous
  Country: US (occurrence: None)
  Receive Date: 20141015
  Receipt Date: 20141015
  Transmission Date: 20150528
  Serious: Yes (Hospitalization)
  Sender: FDA-Public Use
  Company Number: None

PATIENT
  Age: 50 Year
  Sex: Female
  Weight: 79.38 kg

DRUGS (1)
  1. ENBREL [Suspect]
     Active Substance: ETANERCEPT
     Indication: RHEUMATOID ARTHRITIS
     Dosage: INJECTABLE?9/22/2014 ONLY
     Route: 058
     Dates: start: 20140922

REACTIONS (2)
  - Eye oedema [None]
  - Hypersensitivity [None]

NARRATIVE: CASE EVENT DATE: 20140922
